FAERS Safety Report 9065403 (Version 2)
Quarter: 2013Q3

REPORT INFORMATION
  Report Type: Report from Study
  Country: JP (occurrence: JP)
  Receive Date: 20130130
  Receipt Date: 20130918
  Transmission Date: 20140515
  Serious: Yes (Death)
  Sender: FDA-Public Use
  Company Number: JP-VERTEX PHARMACEUTICAL INC.-AE-2012-007915

PATIENT
  Age: 75 Year
  Sex: Female

DRUGS (9)
  1. VX-950 (TELAPREVIR) [Suspect]
     Indication: CHRONIC HEPATITIS C
     Dosage: 1500 MG, QD
     Route: 048
     Dates: start: 20120220, end: 20120227
  2. REBETOL [Suspect]
     Indication: CHRONIC HEPATITIS C
     Dosage: 400 MG, QD
     Route: 048
     Dates: start: 20120220, end: 20120326
  3. PEGINTRON [Suspect]
     Indication: CHRONIC HEPATITIS C
     Dosage: 80 ?G, QW
     Route: 058
     Dates: start: 20120220, end: 20120312
  4. GLAKAY [Concomitant]
     Dosage: 45 MG, QD
     Route: 048
     Dates: start: 20120220, end: 20120407
  5. JUVELA [Concomitant]
     Dosage: 300 MG, QD
     Route: 048
     Dates: start: 20120220, end: 20120407
  6. ADALAT [Concomitant]
     Dosage: 20 MG, QD
     Route: 048
     Dates: start: 20120220, end: 20120407
  7. URSO [Concomitant]
     Dosage: 600 MG, QD
     Route: 048
     Dates: start: 20120221, end: 20120407
  8. MICARDIS [Concomitant]
     Dosage: 20 MG, QD
     Route: 048
     Dates: start: 20120220, end: 20120407
  9. EPADEL [Concomitant]
     Dosage: 1800 MG, QD
     Route: 048
     Dates: end: 20120407

REACTIONS (1)
  - Cardiac failure [Fatal]
